FAERS Safety Report 7539130-4 (Version None)
Quarter: 2011Q2

REPORT INFORMATION
  Report Type: 
  Country: None (occurrence: None)
  Receive Date: 20110610
  Receipt Date: 20011119
  Transmission Date: 20111010
  Serious: Yes (Death)
  Sender: FDA-Public Use
  Company Number: PHBS2001CA01563

PATIENT
  Sex: Male

DRUGS (2)
  1. ANTIHISTAMINES [Suspect]
     Dosage: UNKNOWN
  2. CLOZARIL [Suspect]
     Indication: SCHIZOPHRENIA
     Dosage: UNKNOWN
     Route: 048
     Dates: start: 19981021

REACTIONS (1)
  - OVERDOSE [None]
